FAERS Safety Report 23773142 (Version 1)
Quarter: 2024Q2

REPORT INFORMATION
  Report Type: Spontaneous
  Country: US (occurrence: US)
  Receive Date: 20240423
  Receipt Date: 20240423
  Transmission Date: 20240716
  Serious: No
  Sender: FDA-Public Use
  Company Number: US-HALEON-2168814

PATIENT

DRUGS (1)
  1. EX-LAX REGULAR STRENGTH STIMULANT LAXATIVE [Suspect]
     Active Substance: SENNOSIDES
     Indication: Flatulence

REACTIONS (2)
  - Gastrointestinal sounds abnormal [Unknown]
  - Product use in unapproved indication [Unknown]
